FAERS Safety Report 11380739 (Version 1)
Quarter: 2015Q3

REPORT INFORMATION
  Report Type: Spontaneous
  Country: US (occurrence: None)
  Receive Date: 20150813
  Receipt Date: 20150813
  Transmission Date: 20151125
  Serious: Yes (Death)
  Sender: FDA-Public Use
  Company Number: None

PATIENT
  Sex: Female

DRUGS (1)
  1. DIABINESE [Suspect]
     Active Substance: CHLORPROPAMIDE
     Indication: DIABETES MELLITUS

REACTIONS (1)
  - Myocardial infarction [None]
